FAERS Safety Report 8816855 (Version 1)
Quarter: 2012Q4

REPORT INFORMATION
  Report Type: Spontaneous
  Country: US (occurrence: None)
  Receive Date: 20121002
  Receipt Date: 20121002
  Transmission Date: 20130627
  Serious: Yes (Other)
  Sender: FDA-Public Use
  Company Number: None

PATIENT
  Age: 41 Year
  Sex: Male
  Weight: 118.39 kg

DRUGS (2)
  1. METFORMIN [Suspect]
     Indication: DIABETES
     Dosage: 3 day po
     Route: 048
     Dates: start: 20120919, end: 20120930
  2. METFORMIN [Suspect]
     Indication: DIABETES
     Dosage: 3 day po
     Route: 048
     Dates: start: 20111022, end: 20111122

REACTIONS (17)
  - Product odour abnormal [None]
  - Blood glucose increased [None]
  - Palpitations [None]
  - Hypoaesthesia [None]
  - Abdominal pain upper [None]
  - Diarrhoea [None]
  - Constipation [None]
  - Migraine [None]
  - Tinnitus [None]
  - Epistaxis [None]
  - Rash [None]
  - Urticaria [None]
  - Feeling abnormal [None]
  - Anger [None]
  - Vision blurred [None]
  - Product quality issue [None]
  - Reaction to drug excipients [None]
